FAERS Safety Report 18334484 (Version 1)
Quarter: 2020Q4

REPORT INFORMATION
  Report Type: Spontaneous
  Country: RU (occurrence: RU)
  Receive Date: 20201001
  Receipt Date: 20201001
  Transmission Date: 20210113
  Serious: Yes (Hospitalization, Other)
  Sender: FDA-Public Use
  Company Number: RU-SCIEGEN-2020SCILIT00308

PATIENT
  Age: 68 Year
  Sex: Male

DRUGS (2)
  1. ATORVASTATIN CALCIUM. [Suspect]
     Active Substance: ATORVASTATIN CALCIUM
     Indication: BLOOD CHOLESTEROL
     Route: 065
  2. ETHOXIDOL [Interacting]
     Active Substance: EMOXYPINE MALATE
     Indication: MYOPATHY
     Route: 065

REACTIONS (2)
  - Bladder cancer [Unknown]
  - Rhabdomyolysis [Recovering/Resolving]
